FAERS Safety Report 11442642 (Version 4)
Quarter: 2015Q4

REPORT INFORMATION
  Report Type: Report from Study
  Country: JP (occurrence: JP)
  Receive Date: 20150901
  Receipt Date: 20151020
  Transmission Date: 20160304
  Serious: Yes (Hospitalization)
  Sender: FDA-Public Use
  Company Number: JP-ROCHE-1625268

PATIENT
  Age: 50 Year
  Sex: Female
  Weight: 58.4 kg

DRUGS (19)
  1. PERTUZUMAB [Suspect]
     Active Substance: PERTUZUMAB
     Indication: HER-2 POSITIVE BREAST CANCER
     Dosage: LOADING DOSE
     Route: 042
     Dates: start: 20141210, end: 20141210
  2. WYPAX [Concomitant]
     Active Substance: LORAZEPAM
     Indication: PROPHYLAXIS OF NAUSEA AND VOMITING
  3. HIRUDOID LOTION [Concomitant]
     Indication: RADIATION SKIN INJURY
     Route: 065
     Dates: start: 20150401
  4. RESTAMIN A KOWA [Concomitant]
     Indication: ECZEMA
     Route: 065
     Dates: start: 20150513, end: 20150826
  5. NOLVADEX [Concomitant]
     Active Substance: TAMOXIFEN CITRATE
     Route: 065
     Dates: start: 20150812
  6. TRASTUZUMAB [Suspect]
     Active Substance: TRASTUZUMAB
     Dosage: MAINTENANCE DOSE. DATE OF LAST DOSE PRIOR TO SAE WAS 351 MG AND ON 12/AUG/2015 MOST RECENT DOSE WAS
     Route: 042
     Dates: start: 20141231
  7. CYCLOPHOSPHAMIDE. [Suspect]
     Active Substance: CYCLOPHOSPHAMIDE
     Indication: HER-2 POSITIVE BREAST CANCER
     Route: 065
     Dates: start: 20140917
  8. MAGNESIUM OXIDE. [Concomitant]
     Active Substance: MAGNESIUM OXIDE
     Indication: CONSTIPATION
     Route: 065
     Dates: start: 20141008
  9. ALLEGRA [Concomitant]
     Active Substance: FEXOFENADINE HYDROCHLORIDE
     Indication: ECZEMA
  10. PERTUZUMAB [Suspect]
     Active Substance: PERTUZUMAB
     Dosage: MAINTENANCE DOSE, MOST RECENT DOSE RECEIVED ON 12/AUG/2015
     Route: 042
     Dates: start: 20141231
  11. METHYCOBAL [Concomitant]
     Active Substance: METHYLCOBALAMIN
     Indication: HYPOAESTHESIA
     Route: 065
     Dates: start: 20150128
  12. TRASTUZUMAB [Suspect]
     Active Substance: TRASTUZUMAB
     Indication: HER-2 POSITIVE BREAST CANCER
     Dosage: LOADING DOSE
     Route: 042
     Dates: start: 20141210, end: 20141210
  13. DOXORUBICIN [Suspect]
     Active Substance: DOXORUBICIN
     Indication: HER-2 POSITIVE BREAST CANCER
     Route: 065
     Dates: start: 20140917
  14. TSUMURA GOSHAJINKIGAN [Concomitant]
     Active Substance: HERBALS
     Indication: HYPOAESTHESIA
     Route: 065
     Dates: start: 20150121
  15. RESTAMIN A KOWA [Concomitant]
     Indication: DERMATITIS
  16. WYPAX [Concomitant]
     Active Substance: LORAZEPAM
     Indication: INSOMNIA
     Route: 065
     Dates: start: 20140917, end: 20150924
  17. ALLEGRA [Concomitant]
     Active Substance: FEXOFENADINE HYDROCHLORIDE
     Indication: FLUSHING
     Route: 065
     Dates: start: 20150213, end: 20150826
  18. PACLITAXEL. [Suspect]
     Active Substance: PACLITAXEL
     Indication: HER-2 POSITIVE BREAST CANCER
     Dosage: DOSE OF LAST PRIOR TO SAE WAS 128 MG ON 11/MAR/2015
     Route: 042
     Dates: start: 20141210
  19. RINDERON VG [Concomitant]
     Active Substance: BETAMETHASONE VALERATE\GENTAMICIN SULFATE
     Indication: RADIATION SKIN INJURY
     Route: 065
     Dates: start: 20150410, end: 20150731

REACTIONS (1)
  - Cellulitis [Recovered/Resolved]

NARRATIVE: CASE EVENT DATE: 20150817
